FAERS Safety Report 5274725-2 (Version None)
Quarter: 2007Q1

REPORT INFORMATION
  Report Type: 
  Country: None (occurrence: None)
  Receive Date: 20070320
  Receipt Date: 20070312
  Transmission Date: 20070707
  Serious: Yes (Other)
  Sender: FDA-Public Use
  Company Number: 238116

PATIENT
  Age: 84 Year
  Sex: Female

DRUGS (11)
  1. LUCENTIS [Suspect]
     Indication: MACULAR DEGENERATION
     Dosage: Q6W, INTRAVITREAL
     Dates: start: 20060701
  2. VITEYES (ASCORBIC ACID, BETA CAROTENE, COPPER, VITAMIN E, ZINC OXIDE) [Concomitant]
  3. LUTEIN (LUTEIN) [Concomitant]
  4. CENTRUM (MINERALS NOS, MULTIVITAMINS NOS) [Concomitant]
  5. URSO 250 [Concomitant]
  6. FOSAMAX [Concomitant]
  7. VERPAMIL (VERAPAMIL) [Concomitant]
  8. LIPITOR [Concomitant]
  9. NITROGLYLCERIN, SUSTAINED RELEASE (NITROGLYCERIN) [Concomitant]
  10. ASPIRIN [Concomitant]
  11. SYNTHROID [Concomitant]

REACTIONS (3)
  - EYE IRRITATION [None]
  - OCULAR HYPERAEMIA [None]
  - VISUAL ACUITY REDUCED [None]
